FAERS Safety Report 18234333 (Version 1)
Quarter: 2020Q3

REPORT INFORMATION
  Report Type: Spontaneous
  Country: FR (occurrence: FR)
  Receive Date: 20200904
  Receipt Date: 20200904
  Transmission Date: 20201103
  Serious: Yes (Life-Threatening)
  Sender: FDA-Public Use
  Company Number: FR-MYLANLABS-2019M1034799

PATIENT
  Age: 22 Year
  Sex: Female

DRUGS (19)
  1. SOLU?MEDROL [Concomitant]
     Active Substance: METHYLPREDNISOLONE SODIUM SUCCINATE
     Dosage: UNK
     Route: 042
     Dates: start: 20120312, end: 20120314
  2. EMEND [Concomitant]
     Active Substance: APREPITANT
     Dosage: UNK UNK, QD
     Route: 048
     Dates: start: 20120312, end: 20120312
  3. SKENAN [Concomitant]
     Active Substance: MORPHINE SULFATE
     Dosage: 50 MG,BID
     Route: 048
  4. ORAMORPH [Concomitant]
     Active Substance: MORPHINE SULFATE
     Dosage: 10 MG,UNK
     Route: 048
     Dates: start: 20120315, end: 20120315
  5. FORLAX [Concomitant]
     Active Substance: POLYETHYLENE GLYCOL 4000
     Dosage: 1 DF,BID
     Route: 048
     Dates: start: 20120312, end: 20120312
  6. XANAX [Concomitant]
     Active Substance: ALPRAZOLAM
     Dosage: UNK UNK, PRN
     Route: 048
  7. ZOPHREN                            /00955302/ [Concomitant]
     Active Substance: ONDANSETRON
     Dosage: 8 MG,BID
     Route: 042
     Dates: start: 20120312, end: 20120312
  8. LEVOTHYROX [Concomitant]
     Active Substance: LEVOTHYROXINE
     Dosage: 75 UG,QD
  9. SOLUPRED                           /00016201/ [Concomitant]
     Active Substance: PREDNISOLONE
     Dosage: UNK
     Route: 048
     Dates: start: 20120312, end: 20120314
  10. DAFALGAN [Concomitant]
     Active Substance: ACETAMINOPHEN
     Indication: PAIN
     Dosage: 1 GRAM, PRN
     Route: 048
  11. CEFAZOLIN [Concomitant]
     Active Substance: CEFAZOLIN
     Dosage: UNK UNK, QD
     Route: 042
     Dates: start: 20120315, end: 20120315
  12. TAXOTERE [Suspect]
     Active Substance: DOCETAXEL
     Indication: SQUAMOUS CELL CARCINOMA
     Dosage: 111.8 MG,UNK
     Route: 042
     Dates: start: 20120312, end: 20120312
  13. EMEND [Concomitant]
     Active Substance: APREPITANT
     Dosage: UNK
     Route: 048
     Dates: start: 20120313, end: 20120314
  14. LYRICA [Concomitant]
     Active Substance: PREGABALIN
     Dosage: 50 MG,BID
     Route: 048
     Dates: start: 20120313, end: 20120316
  15. ACTISKENAN [Concomitant]
     Active Substance: MORPHINE SULFATE
     Indication: PAIN
     Dosage: 15 MG,PRN
  16. PRIMPERAN [Concomitant]
     Active Substance: METOCLOPRAMIDE HYDROCHLORIDE
     Dosage: 10 MG,PRN
     Route: 042
     Dates: start: 20120312, end: 20120312
  17. CISPLATIN. [Suspect]
     Active Substance: CISPLATIN
     Indication: SQUAMOUS CELL CARCINOMA
     Dosage: 111.8 MILLIGRAM
     Route: 042
     Dates: start: 20120312, end: 20120312
  18. FLUOROURACIL. [Suspect]
     Active Substance: FLUOROURACIL
     Indication: SQUAMOUS CELL CARCINOMA
     Dosage: 5587.5 MG,UNK
     Route: 042
     Dates: start: 20120312, end: 20120417
  19. SPASFON                            /00765801/ [Concomitant]
     Active Substance: PHLOROGLUCINOL\1,3,5-TRIMETHOXYBENZENE
     Dosage: 1 DOSAGE FORM, TID
     Route: 042
     Dates: start: 20120317, end: 20120317

REACTIONS (1)
  - Posterior reversible encephalopathy syndrome [Recovered/Resolved]

NARRATIVE: CASE EVENT DATE: 20120316
